FAERS Safety Report 24358909 (Version 2)
Quarter: 2024Q4

REPORT INFORMATION
  Report Type: Report from Study
  Country: US (occurrence: US)
  Receive Date: 20240924
  Receipt Date: 20241010
  Transmission Date: 20250115
  Serious: No
  Sender: SUNOVION
  Company Number: US-SUMITOMO PHARMA SWITZERLAND GMBH-2024SPA002122

PATIENT

DRUGS (3)
  1. ORGOVYX [Suspect]
     Active Substance: RELUGOLIX
     Indication: Prostate cancer
     Dosage: 120 MG, QD
     Route: 048
     Dates: start: 20240625
  2. DILTIAZEM [Suspect]
     Active Substance: DILTIAZEM
     Indication: Heart rate increased
     Dosage: UNK
     Route: 065
     Dates: start: 2024, end: 202409
  3. FIRMAGON [Suspect]
     Active Substance: DEGARELIX ACETATE
     Dosage: UNK
     Route: 065

REACTIONS (4)
  - Abdominal distension [Recovered/Resolved]
  - Fatigue [Recovered/Resolved]
  - Hot flush [Unknown]
  - Incorrect dose administered [Unknown]

NARRATIVE: CASE EVENT DATE: 20240101
